FAERS Safety Report 16785921 (Version 1)
Quarter: 2019Q3

REPORT INFORMATION
  Report Type: Report from Study
  Country: CA (occurrence: CA)
  Receive Date: 20190909
  Receipt Date: 20190909
  Transmission Date: 20191005
  Serious: Yes (Hospitalization, Other)
  Sender: FDA-Public Use
  Company Number: CA-PFIZER INC-2019383597

PATIENT
  Age: 34 Year
  Sex: Female

DRUGS (7)
  1. BACLOFEN. [Concomitant]
     Active Substance: BACLOFEN
     Dosage: 20 MG, 4X/DAY
  2. HEPARIN SODIUM. [Suspect]
     Active Substance: HEPARIN SODIUM
     Dosage: UNK
     Route: 042
  3. VEDOLIZUMAB [Suspect]
     Active Substance: VEDOLIZUMAB
     Dosage: 250 MG, UNK
     Route: 042
  4. GABAPENTIN. [Concomitant]
     Active Substance: GABAPENTIN
     Indication: ARTHRITIS
     Dosage: 300 MG, 2X/DAY
  5. TRILAFON [Concomitant]
     Active Substance: PERPHENAZINE
     Dosage: 8 MG, UNK
  6. PROMETHAZINE [Concomitant]
     Active Substance: PROMETHAZINE HYDROCHLORIDE
     Indication: NAUSEA
     Dosage: 25 MG, UNK
  7. VEDOLIZUMAB [Suspect]
     Active Substance: VEDOLIZUMAB
     Indication: CROHN^S DISEASE
     Dosage: 300 MG, UNK
     Route: 042

REACTIONS (10)
  - Off label use [Recovered/Resolved]
  - Hallucination [Recovered/Resolved]
  - Road traffic accident [Recovered/Resolved]
  - Pulmonary embolism [Recovered/Resolved]
  - Disturbance in attention [Recovered/Resolved]
  - Confusional state [Recovered/Resolved]
  - Multiple fractures [Recovered/Resolved]
  - Cerebral haemorrhage [Recovered/Resolved]
  - Facial paralysis [Recovered/Resolved]
  - Mental impairment [Recovered/Resolved]
